FAERS Safety Report 9492984 (Version 3)
Quarter: 2014Q1

REPORT INFORMATION
  Report Type: Spontaneous
  Country: US (occurrence: US)
  Receive Date: 20130902
  Receipt Date: 20140328
  Transmission Date: 20141002
  Serious: Yes (Hospitalization)
  Sender: FDA-Public Use
  Company Number: US-BIOGENIDEC-2013BI078950

PATIENT
  Age: 54 Year
  Sex: Female

DRUGS (8)
  1. AVONEX [Suspect]
     Indication: MULTIPLE SCLEROSIS
     Route: 030
     Dates: start: 200708, end: 201307
  2. AVONEX [Suspect]
     Indication: MULTIPLE SCLEROSIS
     Route: 030
     Dates: start: 20140319
  3. TYLENOL [Concomitant]
     Route: 048
     Dates: start: 2014
  4. FUROSEMIDE [Concomitant]
     Route: 048
     Dates: start: 2014
  5. NEXIUM [Concomitant]
     Route: 048
     Dates: start: 2013
  6. LISINOPRIL-HCTZ [Concomitant]
     Route: 048
     Dates: start: 2013
  7. CYMBALTA [Concomitant]
     Route: 048
     Dates: start: 2013
  8. ALTENOLOL [Concomitant]
     Dates: start: 2012

REACTIONS (4)
  - Pneumonia bacterial [Recovered/Resolved]
  - Pneumonia legionella [Recovered/Resolved]
  - Laryngitis [Not Recovered/Not Resolved]
  - Influenza like illness [Recovered/Resolved]
